FAERS Safety Report 4950561-9 (Version None)
Quarter: 2006Q1

REPORT INFORMATION
  Report Type: 
  Country: None (occurrence: None)
  Receive Date: 20060321
  Receipt Date: 20060321
  Transmission Date: 20060701
  Serious: Yes (Other)
  Sender: FDA-Public Use
  Company Number: None

PATIENT
  Age: 29 Year
  Sex: Male
  Weight: 65.7716 kg

DRUGS (5)
  1. NEURONTIN [Suspect]
     Indication: NEURALGIA
     Dosage: (600MG) 2 TABS TID
     Dates: start: 20060301, end: 20060301
  2. NEURONTIN [Suspect]
     Indication: PARAPLEGIA
     Dosage: (600MG) 2 TABS TID
     Dates: start: 20060301, end: 20060301
  3. COLACE [Concomitant]
  4. VICODIN [Concomitant]
  5. URINARY CATHETER [Concomitant]

REACTIONS (2)
  - DRUG EFFECT DECREASED [None]
  - THERAPEUTIC RESPONSE UNEXPECTED WITH DRUG SUBSTITUTION [None]
